FAERS Safety Report 9508025 (Version 1)
Quarter: 2013Q1

REPORT INFORMATION
  Report Type: Spontaneous
  Country: US (occurrence: None)
  Receive Date: 20130305
  Receipt Date: 20130305
  Transmission Date: 20140127
  Serious: Yes (Other)
  Sender: FDA-Public Use
  Company Number: 163-21880-12111165

PATIENT
  Age: 55 Year
  Sex: Female

DRUGS (6)
  1. REVLIMID (LENALIDOMIDE) (25 MILLIGRAM CAPSULES) [Suspect]
     Indication: PLASMA CELL MYELOMA
     Dosage: 25MG, 21 IN 28 D, PO
     Route: 048
     Dates: start: 20120706
  2. VITAMINS [Concomitant]
  3. AREDIA (PAMIDRONATE DISODIUM) [Concomitant]
  4. VITAMIN E (TOCOPHEROL) [Concomitant]
  5. CALCIUM + VITAMIN D (LEKOVIT CA) [Concomitant]
  6. ASA (ACETYLSALICYLIC ACID) [Concomitant]

REACTIONS (1)
  - Drug dose omission [None]
